FAERS Safety Report 5525325-8 (Version None)
Quarter: 2007Q4

REPORT INFORMATION
  Report Type: 
  Country: None (occurrence: None)
  Receive Date: 20071120
  Receipt Date: 20071114
  Transmission Date: 20080405
  Serious: Yes (Disabling)
  Sender: FDA-Public Use
  Company Number: 163-20785-07100542

PATIENT
  Age: 62 Year
  Sex: Male

DRUGS (5)
  1. THALOMID [Suspect]
     Indication: MULTIPLE MYELOMA
     Dosage: 200 MG, 2 IN 1 D, ORAL
     Route: 048
     Dates: start: 20070228, end: 20070701
  2. ERYTHROPOETIN (EPOETIN ALFA) [Concomitant]
  3. WARFARIN SODIUM [Concomitant]
  4. OXYCONTIN [Concomitant]
  5. PERCOCET [Concomitant]

REACTIONS (2)
  - PHRENIC NERVE PARALYSIS [None]
  - RESPIRATORY DISORDER [None]
